FAERS Safety Report 10096653 (Version 1)
Quarter: 2014Q2

REPORT INFORMATION
  Report Type: Spontaneous
  Country: CN (occurrence: CN)
  Receive Date: 20140422
  Receipt Date: 20140422
  Transmission Date: 20141212
  Serious: Yes (Life-Threatening)
  Sender: FDA-Public Use
  Company Number: CN-ABBVIE-14P-035-1227781-00

PATIENT
  Age: 77 Year
  Sex: Female

DRUGS (1)
  1. DEPAKINE CHRONO [Suspect]
     Indication: EPILEPSY
     Dosage: EXTENDED RELEASE; TIME TO ONSET 19 DAYS
     Route: 048
     Dates: start: 20130720, end: 20130808

REACTIONS (9)
  - Epidermolysis bullosa [Recovering/Resolving]
  - Erythema [Recovering/Resolving]
  - Papule [Recovering/Resolving]
  - Drug eruption [Recovering/Resolving]
  - Blister [Recovering/Resolving]
  - Skin exfoliation [Recovering/Resolving]
  - Swelling face [Recovering/Resolving]
  - Flushing [Recovering/Resolving]
  - Lacrimation increased [Recovering/Resolving]
